FAERS Safety Report 16245393 (Version 1)
Quarter: 2019Q2

REPORT INFORMATION
  Report Type: Spontaneous
  Country: US (occurrence: US)
  Receive Date: 20190426
  Receipt Date: 20190426
  Transmission Date: 20190711
  Serious: Yes (Death, Hospitalization)
  Sender: FDA-Public Use
  Company Number: US-TEVA-2019-US-1043097

PATIENT
  Sex: Female

DRUGS (1)
  1. CLOZAPINE. [Suspect]
     Active Substance: CLOZAPINE
     Route: 065

REACTIONS (7)
  - Aphasia [Unknown]
  - Paralysis [Unknown]
  - Mental impairment [Unknown]
  - Death [Fatal]
  - Gait inability [Unknown]
  - Nausea [Unknown]
  - Vomiting [Unknown]
